FAERS Safety Report 15165801 (Version 2)
Quarter: 2019Q3

REPORT INFORMATION
  Report Type: Spontaneous
  Country: US (occurrence: US)
  Receive Date: 20180719
  Receipt Date: 20190703
  Transmission Date: 20191004
  Serious: Yes (Death, Life-Threatening)
  Sender: FDA-Public Use
  Company Number: US-PFIZER INC-2018290349

PATIENT
  Age: 59 Year
  Sex: Male

DRUGS (7)
  1. NOREPINEPHRINE BITARTRATE. [Suspect]
     Active Substance: NOREPINEPHRINE BITARTRATE
     Indication: SEPTIC SHOCK
     Dosage: UNK
  2. BACTERIOSTATIC SODIUM CHLORIDE [Suspect]
     Active Substance: SODIUM CHLORIDE
     Indication: PANCREATITIS ACUTE
     Dosage: 4 L, UNK
  3. VANCOMYCIN HCL [Suspect]
     Active Substance: VANCOMYCIN HYDROCHLORIDE
     Indication: PANCREATITIS ACUTE
     Dosage: UNK
  4. PHENYLEPHRINE [Suspect]
     Active Substance: PHENYLEPHRINE HYDROCHLORIDE
     Indication: PANCREATITIS ACUTE
     Dosage: UNK
  5. ALBUMIN [Suspect]
     Active Substance: ALBUMIN HUMAN
     Indication: PANCREATITIS ACUTE
     Dosage: UNK
     Route: 042
  6. MEROPENEM. [Suspect]
     Active Substance: MEROPENEM
     Indication: PANCREATITIS ACUTE
     Dosage: UNK
  7. VASOPRESSIN. [Suspect]
     Active Substance: VASOPRESSIN
     Indication: PANCREATITIS ACUTE
     Dosage: UNK

REACTIONS (9)
  - Acute hepatic failure [Fatal]
  - Disseminated intravascular coagulation [Fatal]
  - Septic shock [Fatal]
  - Thrombosis mesenteric vessel [Fatal]
  - Renal failure [Fatal]
  - Abdominal compartment syndrome [Fatal]
  - Multiple organ dysfunction syndrome [Fatal]
  - Intestinal ischaemia [Fatal]
  - Drug ineffective [Fatal]
